FAERS Safety Report 9452488 (Version 1)
Quarter: 2013Q3

REPORT INFORMATION
  Report Type: Spontaneous
  Country: US (occurrence: None)
  Receive Date: 20130808
  Receipt Date: 20130808
  Transmission Date: 20140515
  Serious: No
  Sender: FDA-Public Use
  Company Number: None

PATIENT
  Age: 71 Year
  Sex: Female
  Weight: 58.51 kg

DRUGS (4)
  1. CIPROFLOXACN [Suspect]
     Indication: GASTROENTERITIS VIRAL
     Route: 048
     Dates: start: 20130807, end: 20130809
  2. CIPROFLOXACN [Suspect]
     Indication: NAUSEA
     Route: 048
     Dates: start: 20130807, end: 20130809
  3. CIPROFLOXACN [Suspect]
     Indication: DIARRHOEA
     Route: 048
     Dates: start: 20130807, end: 20130809
  4. CIPROFLOXACN [Suspect]
     Indication: ABDOMINAL PAIN UPPER
     Route: 048
     Dates: start: 20130807, end: 20130809

REACTIONS (1)
  - Back pain [None]
